FAERS Safety Report 23205520 (Version 1)
Quarter: 2023Q4

REPORT INFORMATION
  Report Type: Spontaneous
  Country: IT (occurrence: IT)
  Receive Date: 20231120
  Receipt Date: 20231120
  Transmission Date: 20240109
  Serious: Yes (Life-Threatening, Hospitalization)
  Sender: FDA-Public Use
  Company Number: IT-PFIZER INC-202300365963

PATIENT
  Age: 77 Year
  Sex: Female

DRUGS (7)
  1. NIRMATRELVIR\RITONAVIR [Suspect]
     Active Substance: NIRMATRELVIR\RITONAVIR
     Indication: Breakthrough COVID-19
     Dosage: 300/300 MILLIGRAMS, 2X/DAY (TWO INTAKES)
     Dates: start: 202210, end: 202210
  2. NIRMATRELVIR\RITONAVIR [Suspect]
     Active Substance: NIRMATRELVIR\RITONAVIR
     Dosage: 300/300 MILLIGRAMS, 2X/DAY (BIS IN DIE)
     Dates: start: 202303, end: 202303
  3. CILGAVIMAB\TIXAGEVIMAB [Suspect]
     Active Substance: CILGAVIMAB\TIXAGEVIMAB
     Indication: Breakthrough COVID-19
     Dosage: 150/150 MILLIGRAMS, SINGLE
     Dates: start: 202210, end: 202210
  4. CILGAVIMAB\TIXAGEVIMAB [Suspect]
     Active Substance: CILGAVIMAB\TIXAGEVIMAB
     Dosage: 150/150 MILLIGRAMS, SINGLE
     Dates: start: 202303, end: 202303
  5. MOLNUPIRAVIR [Suspect]
     Active Substance: MOLNUPIRAVIR
     Indication: Breakthrough COVID-19
     Dosage: 800 MG, 2X/DAY
     Dates: start: 202301, end: 202301
  6. REMDESIVIR [Suspect]
     Active Substance: REMDESIVIR
     Indication: Breakthrough COVID-19
     Dosage: 200 MG, FIRST DAY
     Dates: start: 202303, end: 202303
  7. REMDESIVIR [Suspect]
     Active Substance: REMDESIVIR
     Dosage: 100 MG, FOR 13 DAYS
     Dates: start: 2023, end: 2023

REACTIONS (2)
  - Drug ineffective [Unknown]
  - Incorrect dose administered [Unknown]
